FAERS Safety Report 8063868-6 (Version None)
Quarter: 2012Q1

REPORT INFORMATION
  Report Type: 
  Country: None (occurrence: None)
  Receive Date: 20120117
  Receipt Date: 20111229
  Transmission Date: 20120608
  Serious: Yes (Death)
  Sender: FDA-Public Use
  Company Number: B0773961A

PATIENT
  Age: 65 Year
  Sex: Male

DRUGS (1)
  1. PROPAFENONE HYDROCHLORIDE [Suspect]
     Dosage: 18200 MG / SINGLE DOSE / ORAL
     Route: 048

REACTIONS (11)
  - COMPLETED SUICIDE [None]
  - INCOHERENT [None]
  - CONVULSION [None]
  - MUSCLE CONTRACTIONS INVOLUNTARY [None]
  - ATRIOVENTRICULAR BLOCK FIRST DEGREE [None]
  - PYREXIA [None]
  - ELECTROCARDIOGRAM QRS COMPLEX PROLONGED [None]
  - HYPOTENSION [None]
  - DEPRESSED LEVEL OF CONSCIOUSNESS [None]
  - HEART RATE DECREASED [None]
  - MYOCLONUS [None]
